FAERS Safety Report 19911873 (Version 1)
Quarter: 2021Q4

REPORT INFORMATION
  Report Type: Other
  Country: PL (occurrence: PL)
  Receive Date: 20211004
  Receipt Date: 20211004
  Transmission Date: 20220303
  Serious: Yes (Hospitalization)
  Sender: FDA-Public Use
  Company Number: PL-ROCHE-2916637

PATIENT
  Age: 62 Year
  Sex: Male
  Weight: 98 kg

DRUGS (12)
  1. AMLODIPINE [Suspect]
     Active Substance: AMLODIPINE BESYLATE
     Indication: Product used for unknown indication
     Dosage: 10 MILLIGRAM PER DAY
     Route: 065
  2. METFORMIN [Suspect]
     Active Substance: METFORMIN HYDROCHLORIDE
     Indication: Product used for unknown indication
     Dosage: 850 MILLIGRAM, (0.33 DAY), TABLET
     Route: 065
  3. FENOFIBRATE [Suspect]
     Active Substance: FENOFIBRATE
     Indication: Product used for unknown indication
     Dosage: 215 MILLIGRAM PER DAY
     Route: 065
  4. CARVEDILOL [Suspect]
     Active Substance: CARVEDILOL
     Indication: Product used for unknown indication
     Dosage: 12.5 MILLIGRAM PER DAY
     Route: 065
  5. TRIMETAZIDINE [Suspect]
     Active Substance: TRIMETAZIDINE
     Indication: Product used for unknown indication
     Dosage: 20 MILLIGRAM, BID
     Route: 065
  6. ROSUVASTATIN [Suspect]
     Active Substance: ROSUVASTATIN
     Indication: Product used for unknown indication
     Dosage: 10 MILLIGRAM PER DAY
     Route: 065
  7. TELMISARTAN [Suspect]
     Active Substance: TELMISARTAN
     Indication: Product used for unknown indication
     Dosage: 80 MILLIGRAM PER DAY
     Route: 065
  8. PANTOPRAZOLE [Suspect]
     Active Substance: PANTOPRAZOLE
     Indication: Product used for unknown indication
     Dosage: 20 MILLIGRAM PER DAY
     Route: 065
  9. LINAGLIPTIN [Suspect]
     Active Substance: LINAGLIPTIN
     Indication: Product used for unknown indication
     Dosage: 5 MILLIGRAM PER DAY
     Route: 065
  10. FLUTICASONE PROPIONATE\SALMETEROL XINAFOATE [Suspect]
     Active Substance: FLUTICASONE PROPIONATE\SALMETEROL XINAFOATE
     Indication: Product used for unknown indication
     Dosage: 2 DOSAGE FORM
  11. ASPIRIN [Suspect]
     Active Substance: ASPIRIN
     Indication: Product used for unknown indication
     Dosage: 75 MILLIGRAM PER DAY
     Route: 065
  12. HYDROCHLOROTHIAZIDE [Suspect]
     Active Substance: HYDROCHLOROTHIAZIDE
     Indication: Product used for unknown indication
     Dosage: 12.5 MILLIGRAM PER DAY
     Route: 065

REACTIONS (22)
  - Diastolic dysfunction [Unknown]
  - Intestinal obstruction [Unknown]
  - Electrocardiogram QT prolonged [Unknown]
  - Tricuspid valve incompetence [Unknown]
  - Mitral valve incompetence [Unknown]
  - Cardiac failure [Unknown]
  - Supraventricular tachycardia [Unknown]
  - Syncope [Unknown]
  - Syncope [Unknown]
  - Fatigue [Unknown]
  - Ventricular arrhythmia [Unknown]
  - Rales [Unknown]
  - Pulmonary valve disease [Unknown]
  - Echocardiogram abnormal [Unknown]
  - Bundle branch block left [Unknown]
  - Stenosis [Unknown]
  - Pericardial disease [Unknown]
  - Cardiomegaly [Unknown]
  - Ejection fraction decreased [Unknown]
  - Skin lesion [Unknown]
  - Left ventricular dysfunction [Unknown]
  - Joint swelling [Unknown]
